FAERS Safety Report 17094254 (Version 3)
Quarter: 2020Q2

REPORT INFORMATION
  Report Type: Report from Study
  Country: AU (occurrence: AU)
  Receive Date: 20191129
  Receipt Date: 20200506
  Transmission Date: 20200713
  Serious: Yes (Other)
  Sender: FDA-Public Use
  Company Number: AU-TOLMAR, INC.-19AU000961

PATIENT
  Sex: Male

DRUGS (3)
  1. FIRMAGON [Concomitant]
     Active Substance: DEGARELIX ACETATE
     Indication: PRODUCT USED FOR UNKNOWN INDICATION
     Route: 065
  2. ELIGARD [Suspect]
     Active Substance: LEUPROLIDE ACETATE
     Indication: PROSTATE CANCER
     Dosage: 22.5 MG, Q 3 MONTH
     Route: 058
     Dates: start: 201607
  3. XGEVA [Concomitant]
     Active Substance: DENOSUMAB
     Indication: BONE DISORDER
     Dosage: UNK, Q 1 MONTH
     Route: 065

REACTIONS (6)
  - Paraesthesia [Unknown]
  - Cystitis [Not Recovered/Not Resolved]
  - Hypoaesthesia [Unknown]
  - Osteoporosis [Unknown]
  - Pollakiuria [Unknown]
  - Dysuria [Unknown]

NARRATIVE: CASE EVENT DATE: 2020
